FAERS Safety Report 5080274-7 (Version None)
Quarter: 2006Q3

REPORT INFORMATION
  Report Type: 
  Country: None (occurrence: None)
  Receive Date: 20060815
  Receipt Date: 20060706
  Transmission Date: 20061208
  Serious: Yes (Hospitalization)
  Sender: FDA-Public Use
  Company Number: FR-ABBOTT-06P-056-0337678-00

PATIENT
  Sex: Female
  Weight: 59 kg

DRUGS (2)
  1. TARKA LP [Suspect]
     Indication: ARRHYTHMIA
     Route: 048
  2. TARKA LP [Suspect]
     Indication: HYPERTENSION

REACTIONS (4)
  - AFFECTIVE DISORDER [None]
  - DELIRIUM [None]
  - DEPRESSION [None]
  - NERVOUS SYSTEM DISORDER [None]
